FAERS Safety Report 22265350 (Version 1)
Quarter: 2023Q2

REPORT INFORMATION
  Report Type: Spontaneous
  Country: US (occurrence: None)
  Receive Date: 20230426
  Receipt Date: 20230426
  Transmission Date: 20230721
  Serious: No
  Sender: FDA-Public Use
  Company Number: None

PATIENT
  Sex: Female

DRUGS (1)
  1. TREMFYA [Suspect]
     Active Substance: GUSELKUMAB
     Indication: Psoriasis
     Dosage: OTHER FREQUENCY : Q 8 WKS;?
     Route: 058
     Dates: start: 202203

REACTIONS (5)
  - Therapeutic product effect decreased [None]
  - Pruritus [None]
  - Burning sensation [None]
  - Pain [None]
  - Injection site erythema [None]
